FAERS Safety Report 7577061-4 (Version None)
Quarter: 2011Q2

REPORT INFORMATION
  Report Type: 
  Country: None (occurrence: None)
  Receive Date: 20110628
  Receipt Date: 20110610
  Transmission Date: 20111010
  Serious: Yes (Hospitalization)
  Sender: FDA-Public Use
  Company Number: JP-BAYER-2011-045628

PATIENT
  Age: 47 Year
  Sex: Female

DRUGS (6)
  1. NEXAVAR [Suspect]
     Dosage: 400 MG, QD
     Route: 048
     Dates: start: 20110524, end: 20110603
  2. HUMAN RED BLOOD CELLS [Concomitant]
     Indication: TRANSFUSION
     Dosage: DAILY DOSE 280 ML
     Route: 042
     Dates: start: 20110330
  3. INTRON A [Concomitant]
     Indication: RENAL CANCER
     Dosage: UNK UNK, TIW
     Route: 058
     Dates: start: 20110513, end: 20110513
  4. INTRON A [Concomitant]
     Dosage: UNK UNK, TIW
     Route: 058
     Dates: start: 20110516, end: 20110516
  5. NEXAVAR [Suspect]
     Indication: RENAL CELL CARCINOMA
     Dosage: 400 MG, BID
     Route: 048
     Dates: start: 20110506, end: 20110523
  6. INTRON A [Concomitant]
     Dosage: UNK UNK, TIW
     Route: 058
     Dates: start: 20110518, end: 20110518

REACTIONS (2)
  - TOXIC SKIN ERUPTION [None]
  - LIVER DISORDER [None]
